FAERS Safety Report 16830932 (Version 2)
Quarter: 2019Q4

REPORT INFORMATION
  Report Type: Spontaneous
  Country: IT (occurrence: IT)
  Receive Date: 20190920
  Receipt Date: 20191024
  Transmission Date: 20200122
  Serious: Yes (Other)
  Sender: FDA-Public Use
  Company Number: IT-SA-2019SA255806

PATIENT
  Age: 60 Year
  Sex: Female

DRUGS (4)
  1. OXALIPLATIN. [Suspect]
     Active Substance: OXALIPLATIN
     Dosage: 140 MG, QCY
     Route: 042
     Dates: start: 20190822, end: 20190822
  2. OXALIPLATIN. [Suspect]
     Active Substance: OXALIPLATIN
     Indication: GALLBLADDER CANCER
     Dosage: 140 MG, QCY
     Route: 042
     Dates: start: 20190416, end: 20190416
  3. GEMCITABINE HYDROCHLORIDE. [Suspect]
     Active Substance: GEMCITABINE HYDROCHLORIDE
     Indication: GALLBLADDER CANCER
     Dosage: 1600 MG, QCY
     Route: 042
     Dates: start: 20190416, end: 20190416
  4. GEMCITABINE HYDROCHLORIDE. [Suspect]
     Active Substance: GEMCITABINE HYDROCHLORIDE
     Dosage: 1600 MG, QCY
     Route: 042
     Dates: start: 20190822, end: 20190822

REACTIONS (3)
  - Erythema [Recovered/Resolved]
  - Hypertensive crisis [Recovered/Resolved]
  - Flushing [Recovered/Resolved]

NARRATIVE: CASE EVENT DATE: 20190822
